FAERS Safety Report 15565399 (Version 1)
Quarter: 2018Q4

REPORT INFORMATION
  Report Type: Spontaneous
  Country: US (occurrence: US)
  Receive Date: 20181024
  Receipt Date: 20181024
  Transmission Date: 20190205
  Serious: Yes (Life-Threatening)
  Sender: FDA-Public Use
  Company Number: None

PATIENT
  Age: 53 Year
  Sex: Male
  Weight: 87.1 kg

DRUGS (2)
  1. LORAZEPAM. [Suspect]
     Active Substance: LORAZEPAM
     Indication: DELIRIUM
     Dosage: ?          OTHER DOSE:2-6 MG;?
     Route: 042
     Dates: start: 20170107, end: 20170108
  2. LORAZEPAM. [Suspect]
     Active Substance: LORAZEPAM
     Indication: DELIRIUM TREMENS
     Dosage: ?          OTHER DOSE:2-6 MG;?
     Route: 042
     Dates: start: 20170107, end: 20170108

REACTIONS (7)
  - Respiratory failure [None]
  - Toxicity to various agents [None]
  - Pulmonary embolism [None]
  - Unresponsive to stimuli [None]
  - Right ventricular failure [None]
  - Bradycardia [None]
  - Pulse absent [None]
